FAERS Safety Report 21991906 (Version 1)
Quarter: 2023Q1

REPORT INFORMATION
  Report Type: Report from Study
  Country: GB (occurrence: GB)
  Receive Date: 20230214
  Receipt Date: 20230214
  Transmission Date: 20230417
  Serious: Yes (Congenital Anomaly, Other)
  Sender: FDA-Public Use
  Company Number: GB-JNJFOC-20230213529

PATIENT

DRUGS (1)
  1. TOPAMAX [Suspect]
     Active Substance: TOPIRAMATE
     Indication: Epilepsy
     Route: 064

REACTIONS (11)
  - Heart disease congenital [Unknown]
  - Autism spectrum disorder [Unknown]
  - Congenital anomaly [Unknown]
  - Small for dates baby [Unknown]
  - Foetal exposure during pregnancy [Recovered/Resolved]
  - Learning disorder [Unknown]
  - Developmental delay [Unknown]
  - Adjustment disorder [Unknown]
  - Loss of personal independence in daily activities [Unknown]
  - Social (pragmatic) communication disorder [Unknown]
  - Communication disorder [Unknown]
